FAERS Safety Report 5532195-0 (Version None)
Quarter: 2007Q4

REPORT INFORMATION
  Report Type: 
  Country: None (occurrence: None)
  Receive Date: 20071203
  Receipt Date: 20061009
  Transmission Date: 20080405
  Serious: No
  Sender: FDA-Public Use
  Company Number: US-BRISTOL-MYERS SQUIBB COMPANY-13534953

PATIENT
  Sex: Female

DRUGS (4)
  1. VIDEX [Suspect]
     Indication: HIV TEST POSITIVE
     Route: 048
  2. SUSTIVA [Concomitant]
  3. RETROVIR [Concomitant]
  4. XANAX [Concomitant]

REACTIONS (6)
  - CHEST DISCOMFORT [None]
  - DIARRHOEA [None]
  - DYSPEPSIA [None]
  - DYSPNOEA [None]
  - FAT REDISTRIBUTION [None]
  - THROAT TIGHTNESS [None]
